FAERS Safety Report 6594787-X (Version None)
Quarter: 2010Q1

REPORT INFORMATION
  Report Type: 
  Country: None (occurrence: None)
  Receive Date: 20100222
  Receipt Date: 20100208
  Transmission Date: 20100710
  Serious: No
  Sender: FDA-Public Use
  Company Number: US-JNJFOC-20100205043

PATIENT
  Sex: Female
  Weight: 56.7 kg

DRUGS (4)
  1. FENTANYL-100 [Suspect]
     Indication: ABDOMINAL PAIN
     Route: 062
  2. SYNTHROID [Concomitant]
     Indication: THYROID DISORDER
     Route: 048
  3. CITALOPRAM HYDROBROMIDE [Concomitant]
     Indication: ANTIDEPRESSANT THERAPY
     Route: 048
  4. METHYLTESTOSTERONE [Concomitant]
     Indication: OESTROGEN THERAPY
     Route: 048

REACTIONS (8)
  - APPLICATION SITE PAIN [None]
  - APPLICATION SITE RASH [None]
  - APPLICATION SITE REACTION [None]
  - DRUG DOSE OMISSION [None]
  - HYPERTENSION [None]
  - MALAISE [None]
  - PRODUCT ADHESION ISSUE [None]
  - WRONG TECHNIQUE IN DRUG USAGE PROCESS [None]
